FAERS Safety Report 4649912-4 (Version None)
Quarter: 2005Q2

REPORT INFORMATION
  Report Type: 
  Country: None (occurrence: None)
  Receive Date: 20050428
  Receipt Date: 20050414
  Transmission Date: 20051028
  Serious: Yes (Hospitalization)
  Sender: FDA-Public Use
  Company Number: 2005AP02329

PATIENT
  Age: 52 Year
  Sex: Male

DRUGS (30)
  1. IRESSA [Suspect]
     Indication: HYPOPHARYNGEAL CANCER
     Dosage: 500 MG DAILY PO
     Route: 048
     Dates: start: 20050217, end: 20050308
  2. IRESSA [Suspect]
     Indication: HYPOPHARYNGEAL CANCER
     Dosage: 500 MG DAILY PO
     Route: 048
     Dates: start: 20050309, end: 20050325
  3. IRESSA [Suspect]
     Indication: HYPOPHARYNGEAL CANCER
     Dosage: 500 MG DAILY PO
     Route: 048
     Dates: start: 20050326, end: 20050101
  4. IRESSA [Suspect]
     Indication: HYPOPHARYNGEAL CANCER
     Dosage: 500 MG DAILY PO
     Route: 048
     Dates: end: 20050415
  5. CISPLATIN [Suspect]
     Indication: HYPOPHARYNGEAL CANCER
     Dosage: 100 MG/M2 Q3WK IV
     Route: 042
     Dates: start: 20050227, end: 20050227
  6. CISPLATIN [Suspect]
     Indication: HYPOPHARYNGEAL CANCER
     Dosage: 100 MG/M2 Q3WK IV
     Route: 042
     Dates: start: 20050321, end: 20050321
  7. RADIOTHERAPY [Suspect]
     Indication: HYPOPHARYNGEAL CANCER
     Dosage: 2 GY EACH DAY WEEK TWO
     Dates: start: 20050228, end: 20050304
  8. RADIOTHERAPY [Suspect]
     Indication: HYPOPHARYNGEAL CANCER
     Dosage: 2 GY EACH DAY WEEK THREE
     Dates: start: 20050307, end: 20050311
  9. RADIOTHERAPY [Suspect]
     Indication: HYPOPHARYNGEAL CANCER
     Dosage: 2 GY EACH DAY WEEK FOUR
     Dates: start: 20050314, end: 20050318
  10. RADIOTHERAPY [Suspect]
     Indication: HYPOPHARYNGEAL CANCER
     Dosage: 2 GY EACH DAY WEEK FIVE
     Dates: start: 20050321, end: 20050325
  11. RADIOTHERAPY [Suspect]
     Indication: HYPOPHARYNGEAL CANCER
     Dosage: 4 GY
     Dates: start: 20050329, end: 20050329
  12. RADIOTHERAPY [Suspect]
     Indication: HYPOPHARYNGEAL CANCER
     Dosage: 2 GY EACH DAY WEEK SIX
     Dates: start: 20050330, end: 20050401
  13. RADIOTHERAPY [Suspect]
     Indication: HYPOPHARYNGEAL CANCER
     Dosage: 2 GY EACH DAY WEEK SEVEN
     Dates: start: 20050404, end: 20050408
  14. RADIOTHERAPY [Suspect]
     Indication: HYPOPHARYNGEAL CANCER
     Dosage: 2 GY EACH DAY WEEK EIGHT
     Dates: start: 20050411, end: 20050415
  15. XANAX [Concomitant]
  16. LYSANXIA [Concomitant]
  17. DAFALGAN CODEINE [Concomitant]
  18. ACETAMINOPHEN [Concomitant]
  19. DAFALGAN [Concomitant]
  20. AUGMENTIN [Concomitant]
  21. COLCHICINE [Concomitant]
  22. OMEPRAZOLE [Concomitant]
  23. ISOBETADINE [Concomitant]
  24. KLINOTAB [Concomitant]
  25. FUCIDINE CAP [Concomitant]
  26. ZYRTEC [Concomitant]
  27. CIPROFLOXACIN [Concomitant]
  28. IMODIUM [Concomitant]
  29. APRANAX [Concomitant]
  30. EOSINE [Concomitant]

REACTIONS (3)
  - DRUG DOSE OMISSION [None]
  - HYPERCREATININAEMIA [None]
  - RENAL FAILURE [None]
